FAERS Safety Report 15318613 (Version 1)
Quarter: 2018Q3

REPORT INFORMATION
  Report Type: Spontaneous
  Country: US (occurrence: US)
  Receive Date: 20180817
  Receipt Date: 20180817
  Transmission Date: 20181010
  Serious: Yes (Hospitalization)
  Sender: FDA-Public Use
  Company Number: None

PATIENT
  Age: 44 Year
  Weight: 107.7 kg

DRUGS (1)
  1. REGORAFENIB. [Suspect]
     Active Substance: REGORAFENIB
     Route: 048
     Dates: start: 20180627, end: 20180807

REACTIONS (2)
  - Anaemia [None]
  - Asthenia [None]

NARRATIVE: CASE EVENT DATE: 20180813
